FAERS Safety Report 7104630-8 (Version None)
Quarter: 2010Q4

REPORT INFORMATION
  Report Type: 
  Country: None (occurrence: None)
  Receive Date: 20101110
  Receipt Date: 20101026
  Transmission Date: 20110411
  Serious: Yes (Other)
  Sender: FDA-Public Use
  Company Number: FKO201000495

PATIENT
  Age: 48 Year
  Sex: Male

DRUGS (4)
  1. METHOTREXATE [Suspect]
     Indication: SYSTEMIC LUPUS ERYTHEMATOSUS
     Dosage: (10 MG,1 WK), (20 MG,1 WK)
  2. HYDROXYCHLOROQUINE (HYDROXYCHLOROQUINE)(HYDROXYCHLOROQUINE) [Concomitant]
  3. PREDNISONE (PREDNISONE) (PREDNISONE) [Concomitant]
  4. DAPSONE (DAPSONE) (DAPSONE) [Concomitant]

REACTIONS (1)
  - HODGKIN'S DISEASE STAGE II [None]
